FAERS Safety Report 6190215-7 (Version None)
Quarter: 2009Q2

REPORT INFORMATION
  Report Type: 
  Country: None (occurrence: None)
  Receive Date: 20090511
  Receipt Date: 20090121
  Transmission Date: 20091009
  Serious: Yes (Hospitalization)
  Sender: FDA-Public Use
  Company Number: 2009BH001235

PATIENT
  Sex: Female

DRUGS (11)
  1. CYTOXAN [Suspect]
     Indication: BREAST CANCER
     Dates: start: 20081213, end: 20081213
  2. PACLITAXEL [Suspect]
     Indication: BREAST CANCER
     Dates: start: 20081213
  3. FLUOROURACIL [Suspect]
     Indication: BREAST CANCER
     Dates: start: 20081213, end: 20081213
  4. EPIRUBICIN [Suspect]
     Indication: BREAST CANCER
     Dates: start: 20081213, end: 20081213
  5. VANCOMYCIN HCL [Concomitant]
  6. HYDROCHLORIDE [Concomitant]
  7. DARVON [Concomitant]
  8. EMLA [Concomitant]
  9. TYLENOL (CAPLET) [Concomitant]
  10. ADVIL [Concomitant]
  11. ZOFRAN [Concomitant]

REACTIONS (1)
  - FEBRILE NEUTROPENIA [None]
